FAERS Safety Report 14661784 (Version 1)
Quarter: 2018Q1

REPORT INFORMATION
  Report Type: Spontaneous
  Country: US (occurrence: US)
  Receive Date: 20180318
  Receipt Date: 20180318
  Transmission Date: 20180509
  Serious: Yes (Other)
  Sender: FDA-Public Use
  Company Number: None

PATIENT
  Age: 60 Year
  Sex: Female
  Weight: 100.7 kg

DRUGS (13)
  1. PROAIR INHALER [Concomitant]
     Active Substance: ALBUTEROL SULFATE
  2. ALKA-SELTZER PLUS NOS [Suspect]
     Active Substance: ACETAMINOPHEN\ASPIRIN\CHLORPHENIRAMINE MALEATE\DEXTROMETHORPHAN HYDROBROMIDE\DIPHENHYDRAMINE HYDROCHLORIDE\DOXYLAMINE SUCCINATE\PHENYLEPHRINE BITARTRATE\PHENYLEPHRINE HYDROCHLORIDE
     Indication: COUGH
     Dosage: 2 EFFERVESCENT TABS PER PKG. 1X DAYTIME 1X BEDTIME 2 TABS DISSOLVED IN 4 OZ. WATER
     Dates: start: 20180212, end: 20180223
  3. ADVAIR HFA [Concomitant]
     Active Substance: FLUTICASONE PROPIONATE\SALMETEROL XINAFOATE
  4. SINGULAIR GENERIC [Concomitant]
     Active Substance: MONTELUKAST SODIUM
  5. CEFDINIR. [Concomitant]
     Active Substance: CEFDINIR
  6. ALBUTEROL. [Concomitant]
     Active Substance: ALBUTEROL
  7. MULTIVITAMIN/MINERAL FOR WOMEN [Concomitant]
  8. BREATHE EASY HERB TEA [Concomitant]
  9. ALKA-SELTZER PLUS NOS [Suspect]
     Active Substance: ACETAMINOPHEN\ASPIRIN\CHLORPHENIRAMINE MALEATE\DEXTROMETHORPHAN HYDROBROMIDE\DIPHENHYDRAMINE HYDROCHLORIDE\DOXYLAMINE SUCCINATE\PHENYLEPHRINE BITARTRATE\PHENYLEPHRINE HYDROCHLORIDE
     Indication: PAIN
     Dosage: 2 EFFERVESCENT TABS PER PKG. 1X DAYTIME 1X BEDTIME 2 TABS DISSOLVED IN 4 OZ. WATER
     Dates: start: 20180212, end: 20180223
  10. VALSARTAN. [Concomitant]
     Active Substance: VALSARTAN
  11. PROBIOTIC BLUE BONNET [Concomitant]
  12. ALKA-SELTZER PLUS NOS [Suspect]
     Active Substance: ACETAMINOPHEN\ASPIRIN\CHLORPHENIRAMINE MALEATE\DEXTROMETHORPHAN HYDROBROMIDE\DIPHENHYDRAMINE HYDROCHLORIDE\DOXYLAMINE SUCCINATE\PHENYLEPHRINE BITARTRATE\PHENYLEPHRINE HYDROCHLORIDE
     Indication: NASOPHARYNGITIS
     Dosage: 2 EFFERVESCENT TABS PER PKG. 1X DAYTIME 1X BEDTIME 2 TABS DISSOLVED IN 4 OZ. WATER
     Dates: start: 20180212, end: 20180223
  13. ALKA-SELTZER PLUS NOS [Suspect]
     Active Substance: ACETAMINOPHEN\ASPIRIN\CHLORPHENIRAMINE MALEATE\DEXTROMETHORPHAN HYDROBROMIDE\DIPHENHYDRAMINE HYDROCHLORIDE\DOXYLAMINE SUCCINATE\PHENYLEPHRINE BITARTRATE\PHENYLEPHRINE HYDROCHLORIDE
     Indication: NASAL CONGESTION
     Dosage: 2 EFFERVESCENT TABS PER PKG. 1X DAYTIME 1X BEDTIME 2 TABS DISSOLVED IN 4 OZ. WATER
     Dates: start: 20180212, end: 20180223

REACTIONS (8)
  - Cystitis [None]
  - Dysuria [None]
  - Eye infection [None]
  - Weight decreased [None]
  - Blood urine present [None]
  - Sleep disorder [None]
  - Hypersensitivity [None]
  - Escherichia test positive [None]

NARRATIVE: CASE EVENT DATE: 20180223
